FAERS Safety Report 24968510 (Version 2)
Quarter: 2025Q4

REPORT INFORMATION
  Report Type: Spontaneous
  Country: EU (occurrence: EU)
  Receive Date: 20250214
  Receipt Date: 20251201
  Transmission Date: 20260117
  Serious: Yes (Other)
  Sender: AUROBINDO
  Company Number: EU-AFSSAPS-TS2025000094

PATIENT
  Age: 68 Year
  Sex: Male
  Weight: 103 kg

DRUGS (4)
  1. LANSOPRAZOLE [Suspect]
     Active Substance: LANSOPRAZOLE
     Indication: Duodenal ulcer
     Dosage: 30 MILLIGRAM, ONCE A DAY
     Route: 065
     Dates: start: 20241226
  2. VORICONAZOLE [Suspect]
     Active Substance: VORICONAZOLE
     Indication: Aspergillus infection
     Dosage: 400 MILLIGRAM, TWO TIMES A DAY
     Dates: start: 20250104, end: 20250120
  3. PROPOFOL [Suspect]
     Active Substance: PROPOFOL
     Indication: Sedation
     Dosage: 0.5 MILLIGRAM/KILOGRAM, EVERY HOUR
     Dates: start: 20250104, end: 20250121
  4. LANSOPRAZOLE [Concomitant]
     Active Substance: LANSOPRAZOLE
     Indication: Duodenal ulcer
     Dosage: 30 MILLIGRAM, ONCE A DAY
     Route: 050
     Dates: start: 20241226

REACTIONS (1)
  - Acute kidney injury [Recovering/Resolving]

NARRATIVE: CASE EVENT DATE: 20250113
